FAERS Safety Report 25092112 (Version 2)
Quarter: 2025Q2

REPORT INFORMATION
  Report Type: Report from Study
  Country: US (occurrence: US)
  Receive Date: 20250319
  Receipt Date: 20250610
  Transmission Date: 20250717
  Serious: Yes (Other)
  Sender: ABBVIE
  Company Number: US-ABBVIE-6175582

PATIENT
  Sex: Male

DRUGS (1)
  1. SKYRIZI [Suspect]
     Active Substance: RISANKIZUMAB-RZAA
     Indication: Crohn^s disease
     Route: 058

REACTIONS (9)
  - Spinal stenosis [Unknown]
  - Fistula [Unknown]
  - Migraine [Unknown]
  - Hypoaesthesia [Unknown]
  - Rheumatoid arthritis [Unknown]
  - Nerve compression [Unknown]
  - Diarrhoea [Not Recovered/Not Resolved]
  - Vomiting [Unknown]
  - Bacterial infection [Unknown]
